FAERS Safety Report 20537138 (Version 1)
Quarter: 2022Q1

REPORT INFORMATION
  Report Type: Spontaneous
  Country: US (occurrence: None)
  Receive Date: 20220301
  Receipt Date: 20220301
  Transmission Date: 20220423
  Serious: No
  Sender: FDA-Public Use
  Company Number: None

PATIENT
  Age: 59 Year
  Sex: Female

DRUGS (1)
  1. DIMETHYL FUMARATE [Suspect]
     Active Substance: DIMETHYL FUMARATE
     Indication: Multiple sclerosis
     Dosage: 240 MG BID ORAL?
     Route: 048
     Dates: start: 2017

REACTIONS (2)
  - Movement disorder [None]
  - Product dose omission issue [None]

NARRATIVE: CASE EVENT DATE: 20220101
